FAERS Safety Report 5353927-0 (Version None)
Quarter: 2007Q2

REPORT INFORMATION
  Report Type: 
  Country: None (occurrence: None)
  Receive Date: 20070608
  Receipt Date: 20070608
  Transmission Date: 20071010
  Serious: Yes (Life-Threatening)
  Sender: FDA-Public Use
  Company Number: None

PATIENT
  Age: 77 Year
  Sex: Female
  Weight: 80 kg

DRUGS (4)
  1. ARANESP [Suspect]
     Indication: ANAEMIA
     Dosage: 100MCG Q7D IV BOLUS
     Route: 040
     Dates: start: 20070524, end: 20070607
  2. ARANESP [Suspect]
     Indication: RENAL FAILURE
     Dosage: 100MCG Q7D IV BOLUS
     Route: 040
     Dates: start: 20070524, end: 20070607
  3. ARANESP [Suspect]
     Indication: ANAEMIA
     Dosage: 100MCG Q7D IV BOLUS
     Route: 040
     Dates: start: 20070531, end: 20070607
  4. ARANESP [Suspect]
     Indication: RENAL FAILURE
     Dosage: 100MCG Q7D IV BOLUS
     Route: 040
     Dates: start: 20070531, end: 20070607

REACTIONS (5)
  - HAEMOGLOBIN DECREASED [None]
  - HEPARIN-INDUCED THROMBOCYTOPENIA [None]
  - HEPATIC FUNCTION ABNORMAL [None]
  - LABORATORY TEST ABNORMAL [None]
  - MYOCARDIAL INFARCTION [None]
